FAERS Safety Report 24691534 (Version 1)
Quarter: 2024Q4

REPORT INFORMATION
  Report Type: Spontaneous
  Country: CN (occurrence: CN)
  Receive Date: 20241203
  Receipt Date: 20241203
  Transmission Date: 20250115
  Serious: Yes (Other)
  Sender: PFIZER
  Company Number: CN-PFIZER INC-PV202400155104

PATIENT
  Age: 66 Year
  Sex: Female

DRUGS (2)
  1. TYGACIL [Suspect]
     Active Substance: TIGECYCLINE
     Indication: Acinetobacter infection
     Dosage: 50 MG, 2X/DAY
     Route: 041
     Dates: start: 20241106, end: 20241111
  2. SULBACTAM [Concomitant]
     Active Substance: SULBACTAM
     Indication: Acinetobacter infection
     Dosage: 3 G, 3X/DAY (Q8H)

REACTIONS (5)
  - Lipase increased [Recovering/Resolving]
  - Amylase increased [Recovering/Resolving]
  - Diarrhoea [Recovering/Resolving]
  - Abdominal pain [Recovering/Resolving]
  - Clostridium test positive [Recovering/Resolving]

NARRATIVE: CASE EVENT DATE: 20241111
